FAERS Safety Report 5708628-3 (Version None)
Quarter: 2008Q2

REPORT INFORMATION
  Report Type: 
  Country: None (occurrence: None)
  Receive Date: 20080414
  Receipt Date: 20080414
  Transmission Date: 20081010
  Serious: No
  Sender: FDA-Public Use
  Company Number: None

PATIENT
  Age: 70 Year
  Sex: Male
  Weight: 83.9154 kg

DRUGS (1)
  1. SINGULAIR [Suspect]
     Indication: ASTHMA
     Dosage: 10MG 1 DAY
     Dates: start: 19980804, end: 20041124

REACTIONS (4)
  - DRUG INEFFECTIVE [None]
  - FREEZING PHENOMENON [None]
  - GAIT DISTURBANCE [None]
  - NO THERAPEUTIC RESPONSE [None]
